FAERS Safety Report 8502413-5 (Version None)
Quarter: 2012Q3

REPORT INFORMATION
  Report Type: 
  Country: None (occurrence: None)
  Receive Date: 20120711
  Receipt Date: 20120704
  Transmission Date: 20120928
  Serious: Yes (Other)
  Sender: FDA-Public Use
  Company Number: PHHY2012LB059010

PATIENT
  Sex: Female

DRUGS (2)
  1. ANGIOTENSIN CONVERTING ENZYME BLOCKERS [Concomitant]
     Indication: ALPORT'S SYNDROME
  2. CYCLOSPORINE [Suspect]
     Indication: ALPORT'S SYNDROME

REACTIONS (2)
  - RENAL FAILURE CHRONIC [None]
  - RENAL IMPAIRMENT [None]
